FAERS Safety Report 4709923-7 (Version None)
Quarter: 2005Q3

REPORT INFORMATION
  Report Type: 
  Country: None (occurrence: None)
  Receive Date: 20050708
  Receipt Date: 20050608
  Transmission Date: 20060218
  Serious: Yes (Hospitalization)
  Sender: FDA-Public Use
  Company Number: IE-ROCHE-407181

PATIENT
  Age: 43 Year
  Sex: Female
  Weight: 75 kg

DRUGS (5)
  1. KYTRIL [Suspect]
     Indication: ANTIEMETIC SUPPORTIVE CARE
     Route: 065
     Dates: start: 20050603, end: 20050603
  2. KYTRIL [Suspect]
     Route: 065
  3. DEXAMETHASONE [Concomitant]
     Indication: ANTIEMETIC SUPPORTIVE CARE
     Route: 042
     Dates: start: 20050603, end: 20050603
  4. DOXORUBICIN HCL [Concomitant]
     Indication: CHEMOTHERAPY
     Route: 042
     Dates: start: 20050603, end: 20050603
  5. CYCLOPHOSPHAMIDE [Concomitant]
     Indication: CHEMOTHERAPY
     Route: 042
     Dates: start: 20050603, end: 20050603

REACTIONS (3)
  - LOCALISED INFECTION [None]
  - PAROTID GLAND ENLARGEMENT [None]
  - SWELLING FACE [None]
